FAERS Safety Report 19175344 (Version 2)
Quarter: 2021Q2

REPORT INFORMATION
  Report Type: Report from Study
  Country: AU (occurrence: AU)
  Receive Date: 20210423
  Receipt Date: 20210507
  Transmission Date: 20210717
  Serious: Yes (Other)
  Sender: FDA-Public Use
  Company Number: AU-ASTRAZENECA-2021A108671

PATIENT
  Age: 25246 Day
  Sex: Male

DRUGS (6)
  1. FASENRA [Suspect]
     Active Substance: BENRALIZUMAB
     Indication: ASTHMA
     Route: 058
     Dates: start: 20191016
  2. FLUTIFORM [Concomitant]
     Active Substance: FLUTICASONE PROPIONATE\FORMOTEROL FUMARATE
     Dosage: 250/10, 1?2 PUFFS, TWICE A DAY.
     Route: 065
     Dates: start: 20181006
  3. PANTOPRAZOLE [Concomitant]
     Active Substance: PANTOPRAZOLE
     Dosage: 40 MG
     Route: 065
  4. PREDNISONE. [Suspect]
     Active Substance: PREDNISONE
     Route: 065
     Dates: start: 201906
  5. VENTOLYN [Concomitant]
     Dosage: 2 PUFFS A DAY
     Route: 065
  6. NUELIN [Concomitant]
     Dosage: 1 TABLET SEVERAL MONTHS, ON AND OFF AS NEEDED. DOSE: SR 200MG
     Route: 065
     Dates: start: 2020

REACTIONS (4)
  - Obstructive airways disorder [Unknown]
  - Immunosuppression [Unknown]
  - Asthma [Recovering/Resolving]
  - Epstein Barr virus positive mucocutaneous ulcer [Not Recovered/Not Resolved]

NARRATIVE: CASE EVENT DATE: 20191016
